FAERS Safety Report 5414113-9 (Version None)
Quarter: 2007Q3

REPORT INFORMATION
  Report Type: 
  Country: None (occurrence: None)
  Receive Date: 20070731
  Receipt Date: 20070525
  Transmission Date: 20080115
  Serious: No
  Sender: FDA-Public Use
  Company Number: US200705006960

PATIENT
  Age: 76 Year
  Sex: Male

DRUGS (5)
  1. BYETTA [Suspect]
     Indication: TYPE 2 DIABETES MELLITUS
     Dosage: 5 UG, 2/D, SUBCUTANEOUS   10 UG, 2/D, SUBCUTANEOUS
     Route: 058
     Dates: start: 20070201, end: 20070401
  2. BYETTA [Suspect]
     Indication: TYPE 2 DIABETES MELLITUS
     Dosage: 5 UG, 2/D, SUBCUTANEOUS   10 UG, 2/D, SUBCUTANEOUS
     Route: 058
     Dates: start: 20070401
  3. INSULIN (INSULIN) [Concomitant]
  4. NPH INSULIN (INSULIN INJECTION, ISOPHANE) [Concomitant]
  5. METFORMIN HCL [Concomitant]

REACTIONS (3)
  - ABDOMINAL PAIN UPPER [None]
  - NAUSEA [None]
  - STOMACH DISCOMFORT [None]
